FAERS Safety Report 5278391-1 (Version None)
Quarter: 2007Q1

REPORT INFORMATION
  Report Type: 
  Country: None (occurrence: None)
  Receive Date: 20061213
  Receipt Date: 20050720
  Transmission Date: 20070707
  Serious: No
  Sender: FDA-Public Use
  Company Number: 2005UW10793

PATIENT
  Age: 20 Year
  Sex: Male

DRUGS (2)
  1. SEROQUEL [Suspect]
     Dosage: 300 MG DAILY PO
     Route: 048
  2. ESKALITH [Concomitant]

REACTIONS (1)
  - PRIAPISM [None]
